FAERS Safety Report 5147262-3 (Version None)
Quarter: 2006Q4

REPORT INFORMATION
  Report Type: 
  Country: None (occurrence: None)
  Receive Date: 20061103
  Receipt Date: 20061027
  Transmission Date: 20070319
  Serious: Yes (Hospitalization, Other)
  Sender: FDA-Public Use
  Company Number: 2006SP003860

PATIENT
  Sex: Male

DRUGS (4)
  1. XOPENEX [Suspect]
     Dosage: INHALATION
     Route: 055
  2. PROVENTIL-HFA [Suspect]
     Dosage: INHALATION
     Route: 055
  3. SINGULAIR [Suspect]
     Dosage: ORAL
     Route: 048
  4. ADVAIR DISKUS 100/50 [Suspect]
     Dosage: INHALATION
     Route: 055

REACTIONS (2)
  - DRUG INEFFECTIVE [None]
  - STATUS ASTHMATICUS [None]
